FAERS Safety Report 21938914 (Version 1)
Quarter: 2023Q1

REPORT INFORMATION
  Report Type: Report from Study
  Country: US (occurrence: US)
  Receive Date: 20230201
  Receipt Date: 20230201
  Transmission Date: 20230418
  Serious: Yes (Other)
  Sender: FDA-Public Use
  Company Number: US-EXELIXIS-CABO-22057369

PATIENT
  Age: 78 Year
  Sex: Male

DRUGS (9)
  1. CABOMETYX [Suspect]
     Active Substance: CABOZANTINIB S-MALATE
     Indication: Thyroid cancer
     Dosage: 40 MG, QD
     Dates: start: 20221011
  2. ATORVASTATIN [Concomitant]
     Active Substance: ATORVASTATIN
     Dosage: UNK
  3. AVODART [Concomitant]
     Active Substance: DUTASTERIDE
     Dosage: UNK
  4. DIPHENHYDRAMINE [Concomitant]
     Active Substance: DIPHENHYDRAMINE
     Dosage: UNK
  5. FLOMAX [Concomitant]
     Active Substance: TAMSULOSIN HYDROCHLORIDE
     Dosage: UNK
  6. SYNTHROID [Concomitant]
     Active Substance: LEVOTHYROXINE SODIUM
     Dosage: UNK
  7. VITAMINS [Concomitant]
     Active Substance: VITAMINS
     Dosage: UNK
  8. CALCIUM [Concomitant]
     Active Substance: CALCIUM
     Dosage: UNK
  9. CALCITRIOL [Concomitant]
     Active Substance: CALCITRIOL
     Dosage: UNK

REACTIONS (7)
  - Blood pressure increased [Recovering/Resolving]
  - Groin pain [Recovered/Resolved]
  - Pruritus [Not Recovered/Not Resolved]
  - Fatigue [Not Recovered/Not Resolved]
  - Rash [Not Recovered/Not Resolved]
  - Dry mouth [Not Recovered/Not Resolved]
  - Sciatica [Recovered/Resolved]

NARRATIVE: CASE EVENT DATE: 20221001
